FAERS Safety Report 7249952-5 (Version None)
Quarter: 2011Q1

REPORT INFORMATION
  Report Type: 
  Country: None (occurrence: None)
  Receive Date: 20110128
  Receipt Date: 20100922
  Transmission Date: 20110831
  Serious: No
  Sender: FDA-Public Use
  Company Number: A0888303A

PATIENT
  Sex: Female

DRUGS (1)
  1. BUPROPION HYDROCHLORIDE [Suspect]
     Dosage: 150MG PER DAY
     Route: 048
     Dates: start: 20100901

REACTIONS (6)
  - TINNITUS [None]
  - DIZZINESS [None]
  - EAR PAIN [None]
  - CHEST DISCOMFORT [None]
  - BURNING SENSATION [None]
  - NASAL DRYNESS [None]
